FAERS Safety Report 8532989-3 (Version None)
Quarter: 2012Q3

REPORT INFORMATION
  Report Type: 
  Country: None (occurrence: None)
  Receive Date: 20120724
  Receipt Date: 20120713
  Transmission Date: 20120928
  Serious: Yes (Death)
  Sender: FDA-Public Use
  Company Number: SG-NOVOPROD-356251

PATIENT
  Age: 78 Year
  Sex: Female

DRUGS (1)
  1. REPAGLINIDE [Suspect]
     Indication: DIABETES MELLITUS
     Route: 065

REACTIONS (1)
  - DEATH [None]
